FAERS Safety Report 24194132 (Version 2)
Quarter: 2024Q3

REPORT INFORMATION
  Report Type: Spontaneous
  Country: FI (occurrence: FI)
  Receive Date: 20240809
  Receipt Date: 20240822
  Transmission Date: 20241017
  Serious: Yes (Hospitalization)
  Sender: AMERICAN REGENT
  Company Number: FI-AMERICAN REGENT INC-2024003074

PATIENT
  Age: 81 Year
  Sex: Female

DRUGS (18)
  1. FERINJECT [Suspect]
     Active Substance: FERRIC CARBOXYMALTOSE
     Indication: Haemoglobin decreased
     Dosage: 1000 MILLIGRAM
     Route: 042
     Dates: start: 20240613, end: 20240613
  2. FERINJECT [Suspect]
     Active Substance: FERRIC CARBOXYMALTOSE
     Indication: Blood iron decreased
  3. FOLIC ACID\IRON POLYMALTOSE [Suspect]
     Active Substance: FOLIC ACID\IRON POLYMALTOSE
     Indication: Iron deficiency
     Dosage: 1 EVERY OTHER DAY (1 DOSAGE FORM,1 IN 2 D)
     Route: 048
     Dates: start: 20240410
  4. FLUTICASONE PROPIONATE [Concomitant]
     Active Substance: FLUTICASONE PROPIONATE
     Indication: Asthma
     Dosage: 1-2X2
     Route: 055
     Dates: start: 20160819
  5. RAMIPRIL [Concomitant]
     Active Substance: RAMIPRIL
     Indication: Hypertension
     Dosage: 1X2
     Route: 048
     Dates: start: 20161008
  6. MIDAZOLAM [Concomitant]
     Active Substance: MIDAZOLAM
     Indication: Colonoscopy
     Dosage: 1 MILLIGRAM, 1 IN 1 TOTAL
     Route: 042
     Dates: start: 20240613, end: 20240613
  7. BARTAL [Concomitant]
     Indication: Peripheral arterial occlusive disease
     Dosage: 1X1
     Route: 048
     Dates: start: 20230419
  8. CALCIUM CARBONATE\CHOLECALCIFEROL [Concomitant]
     Active Substance: CALCIUM CARBONATE\CHOLECALCIFEROL
     Indication: Calcium deficiency
     Dosage: 1X2
     Route: 048
     Dates: start: 20161008
  9. CALCIUM CARBONATE\CHOLECALCIFEROL [Concomitant]
     Active Substance: CALCIUM CARBONATE\CHOLECALCIFEROL
     Indication: Vitamin D deficiency
  10. ACETAMINOPHEN [Concomitant]
     Active Substance: ACETAMINOPHEN
     Indication: Pain
     Dosage: 1X1-3 AS NECESSARY
     Route: 048
     Dates: start: 20231129
  11. VAGIFEM [Concomitant]
     Active Substance: ESTRADIOL
     Indication: Product used for unknown indication
     Dosage: 2 TIMES PER WEEK (2 IN 1 WK)
     Route: 067
     Dates: start: 20240528
  12. PANTOPRAZOLE SODIUM [Concomitant]
     Active Substance: PANTOPRAZOLE SODIUM
     Indication: Prophylaxis against gastrointestinal ulcer
     Dosage: 1X1 AS NEEDED (20 MILLIGRAM AS REQUIRED)
     Route: 048
     Dates: start: 20220815
  13. ALFENTANIL [Concomitant]
     Active Substance: ALFENTANIL
     Indication: Colonoscopy
     Dosage: 0.25 MILLIGRAM IV AT 10:51, 10:53, 10:56 AM (0.75 MG IN TOTAL) (0.75 MG 1 IN 1 TOTAL)
     Route: 042
     Dates: start: 20240613, end: 20240613
  14. PANADOL [Concomitant]
     Active Substance: ACETAMINOPHEN
     Indication: Pain
     Dosage: 1-2 X 1-3 AS NEEDED
     Route: 048
     Dates: start: 20231219
  15. HERBALS\PLANTAGO OVATA LEAF [Concomitant]
     Active Substance: HERBALS\PLANTAGO OVATA LEAF
     Indication: Constipation
     Dosage: 1 MEASURING CUP X1
     Route: 048
     Dates: start: 20220418
  16. ALBUTEROL SULFATE [Concomitant]
     Active Substance: ALBUTEROL SULFATE
     Indication: Asthma
     Dosage: 1 INHALATION 1-4 TIMES A DAY AS NEEDED
     Route: 055
     Dates: start: 20161101
  17. BISOPROLOL [Concomitant]
     Active Substance: BISOPROLOL\BISOPROLOL FUMARATE
     Indication: Hypertension
     Dosage: 1X1
     Route: 048
     Dates: start: 20210323
  18. MELATONIN [Concomitant]
     Active Substance: MELATONIN
     Indication: Insomnia
     Dosage: 3 MILLIGRAM AS REQUIRED
     Route: 048
     Dates: start: 20210121

REACTIONS (6)
  - Memory impairment [Recovered/Resolved]
  - Slow speech [Recovered/Resolved]
  - Disorientation [Recovered/Resolved]
  - Pallor [Recovered/Resolved]
  - Blood pressure increased [Recovered/Resolved]
  - Headache [Recovered/Resolved]

NARRATIVE: CASE EVENT DATE: 20240613
